FAERS Safety Report 23261328 (Version 4)
Quarter: 2024Q1

REPORT INFORMATION
  Report Type: Spontaneous
  Country: FR (occurrence: None)
  Receive Date: 20231205
  Receipt Date: 20240102
  Transmission Date: 20240409
  Serious: Yes (Death, Life-Threatening, Other)
  Sender: FDA-Public Use
  Company Number: 2023A273314

PATIENT
  Age: 62 Year
  Sex: Male

DRUGS (19)
  1. TICAGRELOR [Interacting]
     Active Substance: TICAGRELOR
     Indication: Infarction
     Dosage: 1 DF, TOTAL1.0DF ONCE/SINGLE ADMINISTRATION
     Route: 048
     Dates: start: 20231027, end: 20231027
  2. ARIXTRA [Interacting]
     Active Substance: FONDAPARINUX SODIUM
     Indication: Infarction
     Dosage: 1 DF TOTAL1.0DF ONCE/SINGLE ADMINISTRATION
     Route: 058
     Dates: start: 20231027
  3. HEPARIN SODIUM [Interacting]
     Active Substance: HEPARIN SODIUM
     Indication: Infarction
     Dosage: UNK
     Route: 042
     Dates: start: 20231027, end: 2023
  4. DICLOFENAC SODIUM [Interacting]
     Active Substance: DICLOFENAC\DICLOFENAC SODIUM
     Indication: Back pain
     Dosage: 50 MG, QD
     Route: 048
     Dates: start: 20231013
  5. KARDEGIC [Suspect]
     Active Substance: ASPIRIN DL-LYSINE
     Indication: Cardiovascular event prophylaxis
     Dosage: 1 DF, QD
     Route: 048
     Dates: start: 2023, end: 2023
  6. METHYLPREDNISOLONE HEMISUCCINATE [Interacting]
     Active Substance: METHYLPREDNISOLONE HEMISUCCINATE
     Indication: Back pain
     Dosage: 48 MG, QD
     Route: 048
     Dates: start: 20231013, end: 20231016
  7. METHYLPREDNISOLONE HEMISUCCINATE [Interacting]
     Active Substance: METHYLPREDNISOLONE HEMISUCCINATE
     Indication: Back pain
     Dosage: 32 MG, QD
     Route: 048
     Dates: start: 20231017, end: 20231021
  8. METHYLPREDNISOLONE HEMISUCCINATE [Interacting]
     Active Substance: METHYLPREDNISOLONE HEMISUCCINATE
     Indication: Back pain
     Dosage: 16 MG, QD
     Route: 048
     Dates: start: 20231022, end: 20231026
  9. NAPROXEN [Interacting]
     Active Substance: NAPROXEN
     Indication: Back pain
     Dosage: 550 MG, QD, IN THE EVENING
     Route: 048
     Dates: start: 20231013
  10. CANDESARTAN CILEXETIL [Concomitant]
     Active Substance: CANDESARTAN CILEXETIL
     Indication: Product used for unknown indication
     Dosage: 32 MG, QD, 16MG IN THE EVENING
     Route: 048
  11. DAPAGLIFLOZIN [Concomitant]
     Active Substance: DAPAGLIFLOZIN
     Indication: Product used for unknown indication
     Dosage: 10 MG, QD
     Route: 048
  12. METFORMIN HYDROCHLORIDE\SAXAGLIPTIN [Concomitant]
     Active Substance: METFORMIN HYDROCHLORIDE\SAXAGLIPTIN
     Indication: Product used for unknown indication
     Dosage: 2 DF, QD
     Route: 048
  13. NITRENDIPINE [Concomitant]
     Active Substance: NITRENDIPINE
     Indication: Product used for unknown indication
     Dosage: 20 MG, QD, IN THE MORNING
     Route: 048
  14. ROSUVASTATIN CALCIUM/CANDESARTAN CILEXETIL [Concomitant]
     Indication: Product used for unknown indication
     Dosage: 10 MG, QD
     Route: 048
  15. HYDROCHLOROTHIAZIDE [Concomitant]
     Active Substance: HYDROCHLOROTHIAZIDE
     Indication: Product used for unknown indication
     Dosage: 12.5 MG, QD
     Route: 048
  16. REPAGLINIDE [Concomitant]
     Active Substance: REPAGLINIDE
     Indication: Product used for unknown indication
     Dosage: 1 MG, IN THE MORNING
  17. REPAGLINIDE [Concomitant]
     Active Substance: REPAGLINIDE
     Indication: Product used for unknown indication
     Dosage: 1 MG, IN THE MORNING
  18. ACETAMINOPHEN\CAFFEINE [Concomitant]
     Active Substance: ACETAMINOPHEN\CAFFEINE
     Indication: Product used for unknown indication
     Dosage: UNK
  19. ACETAMINOPHEN\CAFFEINE [Concomitant]
     Active Substance: ACETAMINOPHEN\CAFFEINE
     Indication: Product used for unknown indication

REACTIONS (4)
  - Pulmonary embolism [Fatal]
  - Gastroduodenal ulcer [Fatal]
  - Shock haemorrhagic [Fatal]
  - Drug interaction [Fatal]

NARRATIVE: CASE EVENT DATE: 20231027
